FAERS Safety Report 6846182-3 (Version None)
Quarter: 2010Q3

REPORT INFORMATION
  Report Type: 
  Country: None (occurrence: None)
  Receive Date: 20100715
  Receipt Date: 20070911
  Transmission Date: 20110219
  Serious: No
  Sender: FDA-Public Use
  Company Number: US-PFIZER INC-2007076730

PATIENT
  Sex: Male
  Weight: 70.4 kg

DRUGS (4)
  1. CHANTIX [Suspect]
     Indication: SMOKING CESSATION THERAPY
     Route: 048
     Dates: start: 20070701, end: 20070701
  2. ZOLOFT [Concomitant]
  3. LIPITOR [Concomitant]
  4. CARDIOVASCULAR SYSTEM DRUGS [Concomitant]

REACTIONS (3)
  - COLD SWEAT [None]
  - INFLUENZA LIKE ILLNESS [None]
  - NAUSEA [None]
